FAERS Safety Report 8068169-8 (Version None)
Quarter: 2012Q1

REPORT INFORMATION
  Report Type: 
  Country: None (occurrence: None)
  Receive Date: 20120124
  Receipt Date: 20110831
  Transmission Date: 20120608
  Serious: No
  Sender: FDA-Public Use
  Company Number: US-AMGEN-USASP2011031164

PATIENT
  Age: 77 Year
  Sex: Female
  Weight: 73.016 kg

DRUGS (7)
  1. ESTRACE [Concomitant]
  2. OMEPRAZOLE [Concomitant]
  3. ACIPHEX [Concomitant]
  4. LEXAPRO [Concomitant]
  5. PROLIA [Suspect]
     Indication: OSTEOPOROSIS POSTMENOPAUSAL
     Dosage: 60 MG, Q6MO
     Dates: start: 20110615, end: 20110617
  6. BUTALBITAL [Concomitant]
  7. ADVICOR [Concomitant]

REACTIONS (2)
  - INFLUENZA LIKE ILLNESS [None]
  - PAIN [None]
